FAERS Safety Report 5272149-5 (Version None)
Quarter: 2007Q1

REPORT INFORMATION
  Report Type: 
  Country: None (occurrence: None)
  Receive Date: 20070322
  Receipt Date: 20070315
  Transmission Date: 20070707
  Serious: Yes (Life-Threatening)
  Sender: FDA-Public Use
  Company Number: 2007AP00613

PATIENT
  Age: 27515 Day
  Sex: Male
  Weight: 47 kg

DRUGS (4)
  1. OMEPRAZON [Suspect]
     Indication: REFLUX OESOPHAGITIS
     Route: 048
     Dates: start: 20061207
  2. ASPIRIN [Suspect]
     Indication: CEREBRAL INFARCTION
     Route: 048
     Dates: start: 20061207
  3. SELBEX [Suspect]
     Indication: GASTRITIS
     Route: 048
     Dates: start: 20061207
  4. ASPIRIN [Concomitant]

REACTIONS (1)
  - INTERSTITIAL LUNG DISEASE [None]
